FAERS Safety Report 19903250 (Version 1)
Quarter: 2021Q4

REPORT INFORMATION
  Report Type: Spontaneous
  Country: US (occurrence: US)
  Receive Date: 20211001
  Receipt Date: 20211001
  Transmission Date: 20220303
  Serious: No
  Sender: FDA-Public Use
  Company Number: US-SPARK THERAPEUTICS, INC.-US-SPK-21-00023

PATIENT
  Age: 6 Year
  Sex: Male

DRUGS (4)
  1. LUXTURNA [Suspect]
     Active Substance: VORETIGENE NEPARVOVEC-RZYL
     Indication: Product used for unknown indication
     Dates: start: 20201111, end: 20201111
  2. LUXTURNA [Suspect]
     Active Substance: VORETIGENE NEPARVOVEC-RZYL
     Dates: start: 20201125, end: 20201125
  3. LUXTURNA [Suspect]
     Active Substance: VORETIGENE NEPARVOVEC-RZYL
     Indication: Product used for unknown indication
     Dates: start: 20201111, end: 20201111
  4. LUXTURNA [Suspect]
     Active Substance: VORETIGENE NEPARVOVEC-RZYL
     Dates: start: 20201125, end: 20201125

REACTIONS (1)
  - Complication associated with device [Unknown]

NARRATIVE: CASE EVENT DATE: 20210527
